FAERS Safety Report 4776640-7 (Version None)
Quarter: 2005Q3

REPORT INFORMATION
  Report Type: 
  Country: None (occurrence: None)
  Receive Date: 20050923
  Receipt Date: 20050912
  Transmission Date: 20060218
  Serious: Yes (Other)
  Sender: FDA-Public Use
  Company Number: 2005AC01342

PATIENT
  Age: 49 Year
  Sex: Female

DRUGS (9)
  1. PROPOFOL [Suspect]
     Indication: GENERAL ANAESTHESIA
     Route: 042
  2. CARBOPLATIN [Interacting]
     Indication: CHEMOTHERAPY
  3. CISPLATIN [Interacting]
     Indication: CHEMOTHERAPY
  4. ETOPOSIDE [Interacting]
     Indication: CHEMOTHERAPY
  5. FENTANYL [Interacting]
     Indication: GENERAL ANAESTHESIA
  6. GEMCITABINE [Interacting]
     Indication: CHEMOTHERAPY
  7. MORPHINE [Interacting]
     Indication: GENERAL ANAESTHESIA
  8. TAXOL [Interacting]
     Indication: CHEMOTHERAPY
  9. PROPRANOLOL [Concomitant]
     Indication: ESSENTIAL HYPERTENSION

REACTIONS (8)
  - CONFUSIONAL STATE [None]
  - DRUG INTERACTION [None]
  - ENCEPHALOPATHY [None]
  - GRAND MAL CONVULSION [None]
  - HEADACHE [None]
  - NUCLEAR MAGNETIC RESONANCE IMAGING BRAIN ABNORMAL [None]
  - THERAPY NON-RESPONDER [None]
  - VISUAL DISTURBANCE [None]
